FAERS Safety Report 20643378 (Version 3)
Quarter: 2023Q4

REPORT INFORMATION
  Report Type: Spontaneous
  Country: DE (occurrence: DE)
  Receive Date: 20220328
  Receipt Date: 20231009
  Transmission Date: 20240109
  Serious: Yes (Life-Threatening, Hospitalization, Other)
  Sender: FDA-Public Use
  Company Number: DE-SA-2022SA102444

PATIENT
  Age: 30 Year
  Sex: Male
  Weight: 67 kg

DRUGS (5)
  1. OXALIPLATIN [Suspect]
     Active Substance: OXALIPLATIN
     Indication: Adenocarcinoma gastric
     Dosage: 85 MG/M2, QCY
  2. DOCETAXEL [Suspect]
     Active Substance: DOCETAXEL
     Indication: Adenocarcinoma gastric
     Dosage: 50 MG/M2, BIWEEKLY, QCY CYCLIC (FOR 0.5 WEEK, 6 CYCLES)
  3. TRASTUZUMAB [Suspect]
     Active Substance: TRASTUZUMAB
     Indication: Adenocarcinoma gastric
     Dosage: 4 MG/KG, QCY
  4. LEUCOVORIN [Suspect]
     Active Substance: LEUCOVORIN\LEUCOVORIN CALCIUM
     Indication: Adenocarcinoma gastric
     Dosage: 200 MG/M2, QCY
  5. FLUOROURACIL [Suspect]
     Active Substance: FLUOROURACIL
     Indication: Adenocarcinoma gastric
     Dosage: 2400 MG/M2 CIV 24H, QCY

REACTIONS (13)
  - Erythema [Unknown]
  - Skin reaction [Unknown]
  - Eczema [Unknown]
  - Tumour lysis syndrome [Unknown]
  - Polyneuropathy [Recovering/Resolving]
  - Pericardial effusion [Recovered/Resolved]
  - Ascites [Recovered/Resolved]
  - Pleural effusion [Recovered/Resolved]
  - Haematotoxicity [Unknown]
  - Paronychia [Unknown]
  - Hepatic function abnormal [Recovering/Resolving]
  - Onycholysis [Unknown]
  - Alopecia [Not Recovered/Not Resolved]
